FAERS Safety Report 21025968 (Version 7)
Quarter: 2023Q4

REPORT INFORMATION
  Report Type: Spontaneous
  Country: US (occurrence: US)
  Receive Date: 20220630
  Receipt Date: 20231005
  Transmission Date: 20240110
  Serious: Yes (Hospitalization)
  Sender: FDA-Public Use
  Company Number: US-PFIZER INC-2021199538

PATIENT
  Age: 6 Year
  Sex: Male

DRUGS (2)
  1. SOMAVERT [Suspect]
     Active Substance: PEGVISOMANT
     Dosage: 10 MG
     Dates: start: 20210217
  2. SOMAVERT [Suspect]
     Active Substance: PEGVISOMANT
     Dosage: UNK (STARTED INJECT EVERY OTHER DAY INSTEAD OF 5 DAYS WEEKLY)
     Dates: start: 2023

REACTIONS (5)
  - COVID-19 [Unknown]
  - Norovirus infection [Unknown]
  - Diarrhoea [Unknown]
  - Off label use [Unknown]
  - Intentional product misuse [Unknown]

NARRATIVE: CASE EVENT DATE: 20210101
